FAERS Safety Report 6273032-9 (Version None)
Quarter: 2009Q3

REPORT INFORMATION
  Report Type: 
  Country: None (occurrence: None)
  Receive Date: 20090715
  Receipt Date: 20090715
  Transmission Date: 20100115
  Serious: Yes (Disabling)
  Sender: FDA-Public Use
  Company Number: None

PATIENT
  Age: 57 Year
  Sex: Male
  Weight: 90.7194 kg

DRUGS (2)
  1. NEXIUM [Suspect]
     Indication: GASTROOESOPHAGEAL REFLUX DISEASE
     Dosage: 40 MG 1 TABLET 2X DAY
     Dates: start: 20081021
  2. NEXIUM [Suspect]
     Indication: GASTROOESOPHAGEAL REFLUX DISEASE
     Dosage: 40 MG 1 TABLET 2X DAY
     Dates: start: 20081211

REACTIONS (4)
  - DRUG HYPERSENSITIVITY [None]
  - PENILE ULCERATION [None]
  - SKIN DISCOLOURATION [None]
  - SWOLLEN TONGUE [None]
